FAERS Safety Report 4553803-7 (Version None)
Quarter: 2005Q1

REPORT INFORMATION
  Report Type: 
  Country: None (occurrence: None)
  Receive Date: 20050114
  Receipt Date: 20050114
  Transmission Date: 20050727
  Serious: Yes (Other)
  Sender: FDA-Public Use
  Company Number: None

PATIENT
  Age: 30 Year
  Sex: Female
  Weight: 63.9572 kg

DRUGS (1)
  1. MEFLOQUINE [Suspect]
     Indication: MALARIA PROPHYLAXIS
     Dosage: 1 TIME A WEEK

REACTIONS (6)
  - AMNESIA [None]
  - HALLUCINATION [None]
  - HYPERVIGILANCE [None]
  - MATERNAL DRUGS AFFECTING FOETUS [None]
  - NIGHTMARE [None]
  - PREGNANCY [None]
